FAERS Safety Report 6553411-2 (Version None)
Quarter: 2010Q1

REPORT INFORMATION
  Report Type: 
  Country: None (occurrence: None)
  Receive Date: 20100127
  Receipt Date: 20091020
  Transmission Date: 20100710
  Serious: No
  Sender: FDA-Public Use
  Company Number: A0812582A

PATIENT
  Age: 31 Year
  Sex: Female

DRUGS (3)
  1. IMITREX [Suspect]
     Indication: MIGRAINE
     Dosage: 100MG PER DAY
     Route: 048
     Dates: start: 20091019
  2. MILK THISTLE [Concomitant]
  3. VITAMIN B-12 [Concomitant]
     Route: 060

REACTIONS (10)
  - ABDOMINAL PAIN UPPER [None]
  - CHEST DISCOMFORT [None]
  - DIARRHOEA [None]
  - EXPIRED DRUG ADMINISTERED [None]
  - HEADACHE [None]
  - MIGRAINE [None]
  - NAUSEA [None]
  - NECK PAIN [None]
  - PAIN IN JAW [None]
  - THROAT TIGHTNESS [None]
